FAERS Safety Report 6084663-3 (Version None)
Quarter: 2009Q1

REPORT INFORMATION
  Report Type: 
  Country: None (occurrence: None)
  Receive Date: 20090217
  Receipt Date: 20090210
  Transmission Date: 20090719
  Serious: Yes (Death)
  Sender: FDA-Public Use
  Company Number: AR_01/09

PATIENT
  Age: 16 Year
  Sex: Female

DRUGS (2)
  1. ZENALB (HUMAN ALBUMIN, HUMAN SERUM ALBUMIN, OCTOID ACID [Suspect]
     Indication: MYASTHENIA GRAVIS
     Dosage: IV, 2.5 DF, 1 DAY
     Route: 042
     Dates: start: 20081208, end: 20081212
  2. PREDNISOLONE [Concomitant]

REACTIONS (3)
  - CARDIAC ARREST [None]
  - CHEST PAIN [None]
  - TRANSFUSION-RELATED ACUTE LUNG INJURY [None]
